FAERS Safety Report 7090884-3 (Version None)
Quarter: 2010Q4

REPORT INFORMATION
  Report Type: 
  Country: None (occurrence: None)
  Receive Date: 20101109
  Receipt Date: 20101028
  Transmission Date: 20110411
  Serious: Yes (Other)
  Sender: FDA-Public Use
  Company Number: US-AMGEN-QUU418527

PATIENT

DRUGS (1)
  1. NPLATE [Suspect]
     Indication: IDIOPATHIC THROMBOCYTOPENIC PURPURA
     Dosage: 110 A?G, Q2WK
     Route: 058
     Dates: start: 20090521

REACTIONS (3)
  - FEELING COLD [None]
  - PLATELET COUNT DECREASED [None]
  - RASH [None]
